FAERS Safety Report 5115016-X (Version None)
Quarter: 2006Q3

REPORT INFORMATION
  Report Type: 
  Country: None (occurrence: None)
  Receive Date: 20060925
  Receipt Date: 20060925
  Transmission Date: 20061208
  Serious: Yes (Other)
  Sender: FDA-Public Use
  Company Number: None

PATIENT
  Age: 65 Year
  Sex: Female
  Weight: 51.2565 kg

DRUGS (2)
  1. NITROGLYCERIN [Suspect]
     Indication: CHEST PAIN
     Dosage: 0.2 MG ONE PATCH QD PATCH
     Dates: start: 20060811
  2. NITROGLYCERIN [Suspect]
     Indication: CHEST PAIN
     Dosage: 0.2 MG ONE PATCH QD PATCH
     Dates: start: 20060901

REACTIONS (2)
  - CHEST PAIN [None]
  - DRUG INEFFECTIVE [None]
